FAERS Safety Report 25968781 (Version 2)
Quarter: 2025Q4

REPORT INFORMATION
  Report Type: Spontaneous
  Country: EU (occurrence: EU)
  Receive Date: 20251028
  Receipt Date: 20251030
  Transmission Date: 20260117
  Serious: Yes (Life-Threatening, Hospitalization)
  Sender: MERCK SHARP & DOHME LLC
  Company Number: EU-ELI_LILLY_AND_COMPANY-ES202509016872AA

PATIENT
  Age: 51 Year
  Sex: Male
  Weight: 83.4 kg

DRUGS (13)
  1. PEMBROLIZUMAB [Suspect]
     Active Substance: PEMBROLIZUMAB
     Indication: Non-small cell lung cancer
     Dosage: TIME INTERVAL: CYCLICAL: 200 MG, CYCLICAL
     Route: 042
     Dates: start: 20250806, end: 20250806
  2. PEMBROLIZUMAB [Suspect]
     Active Substance: PEMBROLIZUMAB
     Indication: Non-small cell lung cancer
     Dosage: TIME INTERVAL: CYCLICAL: 200 MG, CYCLICAL
     Route: 042
     Dates: start: 20250827, end: 20250827
  3. ENALAPRIL [Concomitant]
     Active Substance: ENALAPRIL
     Indication: Hypertension
  4. FOLIC ACID [Concomitant]
     Active Substance: FOLIC ACID
     Indication: Prophylaxis
  5. NEBIVOLOL [Concomitant]
     Active Substance: NEBIVOLOL
     Indication: Hypertension
  6. VITAMIN B12 [Concomitant]
     Active Substance: CYANOCOBALAMIN
     Indication: Prophylaxis
  7. FENOFIBRATE [Concomitant]
     Active Substance: FENOFIBRATE
     Indication: Dyslipidaemia
  8. PEMETREXED [Suspect]
     Active Substance: PEMETREXED
     Indication: Non-small cell lung cancer
     Dosage: TIME INTERVAL: CYCLICAL: 500 MG/M2, CYCLICAL, EVERY 3 WEEKS
     Route: 042
     Dates: start: 20250806, end: 20250806
  9. PEMETREXED [Suspect]
     Active Substance: PEMETREXED
     Indication: Non-small cell lung cancer
     Dosage: TIME INTERVAL: CYCLICAL: 500 MG/M2, CYCLICAL, EVERY 3 WEEKS
     Route: 042
     Dates: start: 20250827, end: 20250827
  10. PEMETREXED [Suspect]
     Active Substance: PEMETREXED
     Indication: Non-small cell lung cancer
     Dosage: TIME INTERVAL: CYCLICAL: 375 MG/M2, CYCLICAL, EVERY 3 WEEKS
     Route: 042
     Dates: start: 20251008, end: 20251008
  11. VITAMIN B COMPLEX [Concomitant]
     Active Substance: CYANOCOBALAMIN\DEXPANTHENOL\NIACINAMIDE\PYRIDOXINE HYDROCHLORIDE\RIBOFLAVIN 5^-PHOSPHATE SODIUM\THIA
     Indication: Alcoholism
  12. CARBOPLATIN [Concomitant]
     Active Substance: CARBOPLATIN
     Indication: Non-small cell lung cancer
     Dosage: TIME INTERVAL: CYCLICAL: 690 MG, CYCLICAL
     Route: 042
     Dates: start: 20250827, end: 20250827
  13. CARBOPLATIN [Concomitant]
     Active Substance: CARBOPLATIN
     Indication: Non-small cell lung cancer
     Dosage: TIME INTERVAL: CYCLICAL: 715 MG, CYCLICAL
     Route: 042
     Dates: start: 20250806, end: 20250806

REACTIONS (2)
  - Colitis [Recovered/Resolved]
  - Diarrhoea [Not Recovered/Not Resolved]

NARRATIVE: CASE EVENT DATE: 20250912
